FAERS Safety Report 22525985 (Version 1)
Quarter: 2023Q2

REPORT INFORMATION
  Report Type: Spontaneous
  Country: GB (occurrence: GB)
  Receive Date: 20230606
  Receipt Date: 20230606
  Transmission Date: 20230721
  Serious: Yes (Other)
  Sender: FDA-Public Use
  Company Number: GB-BRISTOL-MYERS SQUIBB COMPANY-2023-077784

PATIENT
  Age: 52 Year
  Sex: Female

DRUGS (4)
  1. OPDIVO [Suspect]
     Active Substance: NIVOLUMAB
     Indication: Malignant melanoma
     Dosage: 4 CYCLES
     Dates: start: 2020, end: 202103
  2. YERVOY [Suspect]
     Active Substance: IPILIMUMAB
     Indication: Malignant melanoma
     Dosage: 4 CYCLES
     Dates: start: 2020, end: 202103
  3. UNSPECIFIED INGREDIENT [Concomitant]
     Active Substance: UNSPECIFIED INGREDIENT
     Indication: Malignant melanoma
  4. HYDROCORTISONE [Concomitant]
     Active Substance: HYDROCORTISONE
     Indication: Malignant melanoma

REACTIONS (8)
  - Headache [Unknown]
  - Gastrointestinal disorder [Unknown]
  - Asthenia [Unknown]
  - Drug ineffective [Unknown]
  - Adrenal disorder [Unknown]
  - Cataract [Unknown]
  - Arthritis [Unknown]
  - Gait disturbance [Unknown]

NARRATIVE: CASE EVENT DATE: 20200101
